FAERS Safety Report 5525109-0 (Version None)
Quarter: 2007Q4

REPORT INFORMATION
  Report Type: 
  Country: None (occurrence: None)
  Receive Date: 20071126
  Receipt Date: 20071115
  Transmission Date: 20080405
  Serious: Yes (Hospitalization)
  Sender: FDA-Public Use
  Company Number: US-JNJFOC-20071105875

PATIENT
  Sex: Female
  Weight: 106.6 kg

DRUGS (8)
  1. INFLIXIMAB, RECOMBINANT [Suspect]
     Indication: COLITIS ULCERATIVE
     Dosage: DOSE: 6 VIALS EVERY 60 DAYS
     Route: 042
  2. SEREVENT [Concomitant]
  3. FLOVENT [Concomitant]
  4. ESTROGENIC SUBSTANCE [Concomitant]
  5. BLOOD PRESSURE MEDICATION [Concomitant]
  6. RANITIDINE HCL [Concomitant]
  7. LEXAPRO [Concomitant]
  8. SINGULAIR [Concomitant]

REACTIONS (2)
  - ASTHMA [None]
  - PNEUMONIA [None]
